FAERS Safety Report 14853186 (Version 3)
Quarter: 2018Q4

REPORT INFORMATION
  Report Type: Spontaneous
  Country: JP (occurrence: US)
  Receive Date: 20180507
  Receipt Date: 20181109
  Transmission Date: 20190204
  Serious: Yes (Hospitalization)
  Sender: FDA-Public Use
  Company Number: US-ORPHAN EUROPE-2047306

PATIENT
  Age: 19 Year
  Sex: Male
  Weight: 49.9 kg

DRUGS (19)
  1. ASCORBIC ACID. [Concomitant]
     Active Substance: ASCORBIC ACID
     Route: 048
  2. ZADITEN [Concomitant]
     Active Substance: KETOTIFEN FUMARATE
     Route: 048
  3. BIOTIN [Concomitant]
     Active Substance: BIOTIN
     Route: 048
  4. ALINAMIN F [Concomitant]
     Active Substance: FURSULTIAMINE HYDROCHLORIDE
     Route: 048
  5. L CARTIN [Concomitant]
     Active Substance: LEVOCARNITINE HYDROCHLORIDE
     Route: 048
  6. NEUQUINON [Concomitant]
     Active Substance: UBIDECARENONE
     Route: 048
  7. MIYA-BM [Concomitant]
     Active Substance: CLOSTRIDIUM BUTYRICUM SPORES STRAIN M-55
     Route: 048
  8. GASTER [Concomitant]
     Active Substance: FAMOTIDINE
     Route: 048
  9. CARBAGLU [Suspect]
     Active Substance: CARGLUMIC ACID
     Route: 050
     Dates: start: 20180227, end: 20180426
  10. CALCIUM LACTATE [Concomitant]
     Active Substance: CALCIUM LACTATE
     Route: 048
  11. SODIUM BENZOATE [Concomitant]
     Active Substance: SODIUM BENZOATE
     Route: 048
  12. ONON [Concomitant]
     Active Substance: PRANLUKAST
     Route: 048
  13. ADSORBIN [Concomitant]
     Active Substance: ALUMINUM SILICATE
     Route: 048
  14. LOPEMIN [Concomitant]
     Active Substance: LOPERAMIDE HYDROCHLORIDE
     Route: 048
  15. CARBAGLU [Suspect]
     Active Substance: CARGLUMIC ACID
     Route: 050
     Dates: start: 20180427, end: 20180508
  16. CARBAGLU [Suspect]
     Active Substance: CARGLUMIC ACID
     Indication: HYPERAMMONAEMIA
     Route: 048
     Dates: start: 20170110
  17. GLUCOSE [Concomitant]
     Active Substance: DEXTROSE
     Route: 048
  18. ENSURE [Concomitant]
     Active Substance: AMINO ACIDS\DEXTROSE\ELECTROLYTES NOS\SOYBEAN OIL\VITAMINS
  19. SOLITA T [Concomitant]
     Route: 048

REACTIONS (3)
  - Upper respiratory tract inflammation [Recovered/Resolved]
  - Vomiting [Recovered/Resolved]
  - Hyperammonaemia [Recovered/Resolved]

NARRATIVE: CASE EVENT DATE: 20180423
